FAERS Safety Report 19377498 (Version 1)
Quarter: 2021Q2

REPORT INFORMATION
  Report Type: Spontaneous
  Country: IT (occurrence: IT)
  Receive Date: 20210604
  Receipt Date: 20210604
  Transmission Date: 20210717
  Serious: Yes (Other)
  Sender: FDA-Public Use
  Company Number: IT-ALXN-A202106366

PATIENT
  Age: 51 Year
  Sex: Male

DRUGS (17)
  1. ROCURONIUM [Concomitant]
     Active Substance: ROCURONIUM BROMIDE
     Indication: GENERAL ANAESTHESIA
     Dosage: 70 MG, UNK
     Route: 065
  2. SEVOFLURANE. [Concomitant]
     Active Substance: SEVOFLURANE
     Indication: ISCHAEMIA
     Dosage: 0.9 %, UNK
     Route: 065
  3. CALCIUM HEPARIN [Concomitant]
     Active Substance: HEPARIN CALCIUM
     Indication: THROMBOSIS
     Dosage: 12500, IU/24H
     Route: 058
  4. SOLIRIS [Suspect]
     Active Substance: ECULIZUMAB
     Indication: PAROXYSMAL NOCTURNAL HAEMOGLOBINURIA
     Dosage: 900 MG, Q2W
     Route: 042
  5. HEPARIN [Concomitant]
     Active Substance: HEPARIN SODIUM
     Indication: COAGULATION TIME
     Dosage: 24000 IU, UNK
     Route: 065
  6. CISATRACURIUM. [Concomitant]
     Active Substance: CISATRACURIUM
     Indication: PRODUCT USED FOR UNKNOWN INDICATION
     Route: 065
  7. PROTAMINE SULPHATE [Concomitant]
     Active Substance: PROTAMINE SULFATE
     Indication: COAGULATION TIME
     Dosage: 350 MG, UNK
     Route: 042
  8. NORADRENALINE                      /00127501/ [Concomitant]
     Active Substance: NOREPINEPHRINE
     Indication: MEAN ARTERIAL PRESSURE
     Dosage: 0.05 MCG/KG/MIN
     Route: 065
  9. CALCIUM HEPARIN [Concomitant]
     Active Substance: HEPARIN CALCIUM
     Dosage: IU/8H
     Route: 058
  10. FENTANYL. [Concomitant]
     Active Substance: FENTANYL
     Indication: GENERAL ANAESTHESIA
     Dosage: 50 MCG
     Route: 042
  11. FENTANYL. [Concomitant]
     Active Substance: FENTANYL
     Dosage: 200 MCG
     Route: 065
  12. FENTANYL. [Concomitant]
     Active Substance: FENTANYL
     Dosage: 1MCG//KG/30 MINUTES
     Route: 065
  13. PIPERACILLIN/TAZOBACTAM [Concomitant]
     Active Substance: PIPERACILLIN SODIUM\TAZOBACTAM SODIUM
     Indication: PROPHYLAXIS
     Route: 065
  14. PROPOFOL. [Concomitant]
     Active Substance: PROPOFOL
     Indication: GENERAL ANAESTHESIA
     Dosage: 3.5 MCG/ML
     Route: 065
  15. FLUCONAZOL [Concomitant]
     Active Substance: FLUCONAZOLE
     Indication: PROPHYLAXIS
     Route: 065
  16. MIDAZOLAM. [Concomitant]
     Active Substance: MIDAZOLAM
     Indication: PRODUCT USED FOR UNKNOWN INDICATION
     Dosage: 2 MG, UNK
     Route: 042
  17. PROPOFOL. [Concomitant]
     Active Substance: PROPOFOL
     Dosage: 3 MCG/ML
     Route: 065

REACTIONS (5)
  - Left ventricular hypertrophy [Unknown]
  - Mitral valve incompetence [Unknown]
  - Ventricular hypokinesia [Unknown]
  - Intravascular haemolysis [Unknown]
  - Coronary artery disease [Unknown]
